FAERS Safety Report 7381399-3 (Version None)
Quarter: 2011Q1

REPORT INFORMATION
  Report Type: 
  Country: None (occurrence: None)
  Receive Date: 20110321
  Receipt Date: 20110310
  Transmission Date: 20110831
  Serious: Yes (Other)
  Sender: FDA-Public Use
  Company Number: MSTR-NO-1103S-0083

PATIENT
  Age: 70 Year
  Sex: Male
  Weight: 53 kg

DRUGS (7)
  1. LEVEOFLOXACIN [Concomitant]
  2. METASTRON [Suspect]
     Indication: BONE PAIN
     Dosage: 3.4 ML, SINGLE DOSE, I.V.
     Route: 042
     Dates: start: 20090304, end: 20090304
  3. METASTRON [Suspect]
     Indication: METASTATIC PAIN
     Dosage: 3.4 ML, SINGLE DOSE, I.V.
     Route: 042
     Dates: start: 20090304, end: 20090304
  4. BACTRIM [Concomitant]
  5. MINOCYCLINE HYDROCHLORIDE [Concomitant]
  6. MEROPENEM [Concomitant]
  7. DICLOFENAC SODIUM [Concomitant]

REACTIONS (2)
  - PLATELET COUNT DECREASED [None]
  - ANAEMIA [None]
